FAERS Safety Report 4595835-9 (Version None)
Quarter: 2005Q1

REPORT INFORMATION
  Report Type: 
  Country: None (occurrence: None)
  Receive Date: 20050224
  Receipt Date: 20050207
  Transmission Date: 20050727
  Serious: Yes (Other)
  Sender: FDA-Public Use
  Company Number: FR_050205793

PATIENT
  Age: 65 Year
  Sex: Female

DRUGS (2)
  1. EVISTA [Suspect]
     Indication: OSTEOPOROSIS
     Dosage: 60 MG DAY
     Dates: start: 20020401, end: 20050101
  2. FOSAMAX [Concomitant]

REACTIONS (5)
  - DEEP VEIN THROMBOSIS [None]
  - ISCHAEMIC STROKE [None]
  - MALAISE [None]
  - THROMBOPHLEBITIS SUPERFICIAL [None]
  - VOMITING [None]
